FAERS Safety Report 14620603 (Version 1)
Quarter: 2018Q1

REPORT INFORMATION
  Report Type: Spontaneous
  Country: US (occurrence: US)
  Receive Date: 20180309
  Receipt Date: 20180309
  Transmission Date: 20180509
  Serious: Yes (Other)
  Sender: FDA-Public Use
  Company Number: US-PFIZER INC-2018093237

PATIENT
  Sex: Female

DRUGS (1)
  1. DILANTIN-125 [Suspect]
     Active Substance: PHENYTOIN
     Dosage: UNK

REACTIONS (7)
  - Seizure [Unknown]
  - Feeling drunk [Unknown]
  - Tremor [Unknown]
  - Dental caries [Unknown]
  - Disturbance in attention [Unknown]
  - Muscle twitching [Unknown]
  - Dizziness [Unknown]
